FAERS Safety Report 9834922 (Version 1)
Quarter: 2014Q1

REPORT INFORMATION
  Report Type: Spontaneous
  Country: US (occurrence: US)
  Receive Date: 20140122
  Receipt Date: 20140122
  Transmission Date: 20141002
  Serious: No
  Sender: FDA-Public Use
  Company Number: US-BAUSCH-BL-2013-004947

PATIENT
  Age: 52 Year
  Sex: Female
  Weight: 79.45 kg

DRUGS (2)
  1. ALAWAY (KETOTIFEN FUMARATE OPHTHALMIC SOLUTION) [Suspect]
     Indication: CONJUNCTIVITIS
     Dosage: 1 DROP; RIGHT EYE; TWICE DAILY
     Route: 047
     Dates: start: 20130829, end: 20130902
  2. ALAWAY (KETOTIFEN FUMARATE OPHTHALMIC SOLUTION) [Suspect]
     Dosage: 1 DROP; LEFT EYE; TWICE DAILY
     Route: 047
     Dates: start: 20130829, end: 20130902

REACTIONS (1)
  - Drug ineffective for unapproved indication [Recovered/Resolved]
